FAERS Safety Report 7738051-1 (Version None)
Quarter: 2011Q3

REPORT INFORMATION
  Report Type: 
  Country: None (occurrence: None)
  Receive Date: 20110908
  Receipt Date: 20110902
  Transmission Date: 20111222
  Serious: Yes (Disabling)
  Sender: FDA-Public Use
  Company Number: GB-SANOFI-AVENTIS-2011SA057116

PATIENT
  Age: 66 Year
  Sex: Male
  Weight: 125 kg

DRUGS (21)
  1. DIHYDROCODEINE BITARTRATE INJ [Concomitant]
     Dates: start: 20110505
  2. ALBUTEROL [Concomitant]
     Dates: start: 20110523, end: 20110620
  3. KETOPROFEN [Concomitant]
     Dates: start: 20110523, end: 20110620
  4. FERROUS SULFATE TAB [Concomitant]
     Dates: start: 20110523
  5. BISOPROLOL FUMARATE [Concomitant]
     Dates: start: 20110411
  6. OMEPRAZOLE [Concomitant]
     Dates: start: 20110602
  7. SLOZEM [Concomitant]
     Dates: start: 20110328
  8. CLOPIDOGREL BISULFATE [Suspect]
     Route: 065
     Dates: start: 20110715
  9. METOCLOPRAMIDE [Concomitant]
     Dates: start: 20010706, end: 20110715
  10. ACIDEX [Concomitant]
     Dates: start: 20110715
  11. E45 ITCH RELIEF [Concomitant]
     Dates: start: 20110602
  12. INADINE [Concomitant]
     Dates: start: 20110725, end: 20110726
  13. NITROGLYCERIN [Concomitant]
     Dates: start: 20110715
  14. MORPHINE SULFATE [Concomitant]
     Dates: start: 20110505
  15. LOPERAMIDE HCL [Concomitant]
     Dates: start: 20110706, end: 20110709
  16. GABAPENTIN [Concomitant]
     Dates: start: 20110505
  17. PRAVASTATIN [Concomitant]
     Dates: start: 20110505
  18. FLOXACILLIN SODIUM [Concomitant]
     Dates: start: 20110801, end: 20110808
  19. NICORANDIL [Concomitant]
     Dates: start: 20110420
  20. HUMAN INSULATARD [Concomitant]
     Dates: start: 20110610
  21. FUROSEMIDE [Concomitant]
     Dates: start: 20110328, end: 20110523

REACTIONS (2)
  - DIZZINESS [None]
  - DYSPNOEA [None]
